FAERS Safety Report 7217102-7 (Version None)
Quarter: 2011Q1

REPORT INFORMATION
  Report Type: 
  Country: None (occurrence: None)
  Receive Date: 20110110
  Receipt Date: 20110103
  Transmission Date: 20110831
  Serious: Yes (Other)
  Sender: FDA-Public Use
  Company Number: US-JNJFOC-20110100388

PATIENT
  Sex: Female

DRUGS (1)
  1. LEVAQUIN [Suspect]
     Indication: PHARYNGITIS
     Route: 048
     Dates: start: 20101122, end: 20101123

REACTIONS (2)
  - JOINT SWELLING [None]
  - ARTHRITIS [None]
